FAERS Safety Report 4937369-5 (Version None)
Quarter: 2006Q1

REPORT INFORMATION
  Report Type: 
  Country: None (occurrence: None)
  Receive Date: 20060309
  Receipt Date: 20060123
  Transmission Date: 20060701
  Serious: Yes (Disabling)
  Sender: FDA-Public Use
  Company Number: PHFR2006GB00626

PATIENT
  Age: 14 Year
  Sex: Male
  Weight: 56.6 kg

DRUGS (1)
  1. RITALIN [Suspect]
     Indication: ATTENTION DEFICIT/HYPERACTIVITY DISORDER
     Dosage: 72 MG/DAY
     Route: 048
     Dates: start: 20040601

REACTIONS (2)
  - RAYNAUD'S PHENOMENON [None]
  - VASOCONSTRICTION [None]
